FAERS Safety Report 16661437 (Version 2)
Quarter: 2019Q3

REPORT INFORMATION
  Report Type: Spontaneous
  Country: US (occurrence: US)
  Receive Date: 20190802
  Receipt Date: 20190812
  Transmission Date: 20191004
  Serious: No
  Sender: FDA-Public Use
  Company Number: US-PFIZER INC-2019331095

PATIENT
  Age: 54 Year
  Sex: Male
  Weight: 136.98 kg

DRUGS (1)
  1. LYRICA [Suspect]
     Active Substance: PREGABALIN
     Indication: NEURALGIA
     Dosage: 50 MG, THRICE DAILY
     Route: 048
     Dates: start: 2014

REACTIONS (3)
  - Product dose omission [Unknown]
  - Poor quality product administered [Unknown]
  - Product physical issue [Unknown]
